FAERS Safety Report 8161633-2 (Version None)
Quarter: 2012Q1

REPORT INFORMATION
  Report Type: 
  Country: None (occurrence: None)
  Receive Date: 20120224
  Receipt Date: 20120220
  Transmission Date: 20120608
  Serious: Yes (Other)
  Sender: FDA-Public Use
  Company Number: US-PFIZER INC-2012044883

PATIENT
  Sex: Female
  Weight: 54.9 kg

DRUGS (2)
  1. LEVOXYL [Suspect]
     Indication: AUTOIMMUNE THYROIDITIS
     Dosage: 0.05 MG, 1X/DAY
     Route: 048
     Dates: end: 20120201
  2. LEVOXYL [Suspect]
     Dosage: 0.05 MG, 1X/DAY
     Route: 048
     Dates: start: 20120217

REACTIONS (7)
  - MUSCLE RIGIDITY [None]
  - MOTOR DYSFUNCTION [None]
  - HYPOKINESIA [None]
  - MUSCLE SPASMS [None]
  - DYSGRAPHIA [None]
  - HYPOAESTHESIA [None]
  - ACTIVITIES OF DAILY LIVING IMPAIRED [None]
